FAERS Safety Report 12931053 (Version 2)
Quarter: 2016Q4

REPORT INFORMATION
  Report Type: Spontaneous
  Country: US (occurrence: US)
  Receive Date: 20161110
  Receipt Date: 20161123
  Transmission Date: 20170207
  Serious: Yes (Death, Other)
  Sender: FDA-Public Use
  Company Number: US-ELI_LILLY_AND_COMPANY-US201611000695

PATIENT
  Age: 62 Year
  Sex: Male

DRUGS (2)
  1. PORTRAZZA [Suspect]
     Active Substance: NECITUMUMAB
     Indication: LUNG NEOPLASM MALIGNANT
     Dosage: UNK, UNKNOWN
     Route: 065
     Dates: start: 201610, end: 201610
  2. PORTRAZZA [Suspect]
     Active Substance: NECITUMUMAB
     Indication: HEAD AND NECK CANCER

REACTIONS (2)
  - Death [Fatal]
  - Infection [Unknown]

NARRATIVE: CASE EVENT DATE: 20161024
